FAERS Safety Report 17073799 (Version 6)
Quarter: 2021Q4

REPORT INFORMATION
  Report Type: Other
  Country: JP (occurrence: JP)
  Receive Date: 20191126
  Receipt Date: 20211112
  Transmission Date: 20220303
  Serious: Yes (Hospitalization)
  Sender: FDA-Public Use
  Company Number: JP-CHUGAI-A2019048390ROCHE

PATIENT
  Age: 65 Year
  Sex: Male
  Weight: 58 kg

DRUGS (10)
  1. ACTEMRA [Suspect]
     Active Substance: TOCILIZUMAB
     Indication: Rheumatoid arthritis
     Route: 058
     Dates: start: 20190904
  2. METHOTREXATE [Concomitant]
     Active Substance: METHOTREXATE
     Indication: Rheumatoid arthritis
     Dosage: DOSAGE IS UNCERTAIN.
     Route: 065
  3. PREDNISOLONE [Concomitant]
     Active Substance: PREDNISOLONE
     Indication: Rheumatoid arthritis
  4. CELECOXIB [Concomitant]
     Active Substance: CELECOXIB
  5. ROSUVASTATIN [Concomitant]
     Active Substance: ROSUVASTATIN
  6. PRASUGREL [Concomitant]
     Active Substance: PRASUGREL
  7. ESOMEPRAZOLE [Concomitant]
     Active Substance: ESOMEPRAZOLE
  8. NICORANDIL [Concomitant]
     Active Substance: NICORANDIL
  9. ISOSORBIDE MONONITRATE [Concomitant]
     Active Substance: ISOSORBIDE MONONITRATE
  10. FOLIC ACID [Concomitant]
     Active Substance: FOLIC ACID

REACTIONS (2)
  - Lupus-like syndrome [Recovering/Resolving]
  - Cardiac tamponade [Recovered/Resolved]

NARRATIVE: CASE EVENT DATE: 20191114
